FAERS Safety Report 5493648-7 (Version None)
Quarter: 2007Q4

REPORT INFORMATION
  Report Type: 
  Country: None (occurrence: None)
  Receive Date: 20071015
  Receipt Date: 20070905
  Transmission Date: 20080405
  Serious: No
  Sender: FDA-Public Use
  Company Number: 2007SP003090

PATIENT
  Sex: Female
  Weight: 86.1834 kg

DRUGS (27)
  1. LUNESTA [Suspect]
     Indication: INSOMNIA
     Dosage: ORAL, 3 MG; 1X; ORAL
     Route: 048
     Dates: start: 20070904, end: 20070904
  2. LUNESTA [Suspect]
     Indication: INSOMNIA
     Dosage: ORAL, 3 MG; 1X; ORAL
     Route: 048
     Dates: start: 20050101
  3. PERCOCET [Concomitant]
  4. MS CONTIN [Concomitant]
  5. SKELAXIN [Concomitant]
  6. ZANAFLEX [Concomitant]
  7. FLEXERIL [Concomitant]
  8. LAXATIVES [Concomitant]
  9. CARAFATE [Concomitant]
  10. NEXIUM [Concomitant]
  11. ZANTAC [Concomitant]
  12. ALEVE [Concomitant]
  13. DIPHENHYDRAMINE HCL [Concomitant]
  14. CELEBREX [Concomitant]
  15. HYDROXYZINE [Concomitant]
  16. TRAZODONE HCL [Concomitant]
  17. DIAZEPAM [Concomitant]
  18. REQUIP [Concomitant]
  19. GAS-X [Concomitant]
  20. SIMETHICONE [Concomitant]
  21. TUMS [Concomitant]
  22. VESICARE [Concomitant]
  23. RELPAX [Concomitant]
  24. ALLEGRA [Concomitant]
  25. ALBUTEROL [Concomitant]
  26. FLONASE [Concomitant]
  27. EYE DROPS [Concomitant]

REACTIONS (5)
  - DRY MOUTH [None]
  - DYSGEUSIA [None]
  - GASTROOESOPHAGEAL REFLUX DISEASE [None]
  - INSOMNIA [None]
  - NAUSEA [None]
